FAERS Safety Report 8005223-0 (Version None)
Quarter: 2011Q4

REPORT INFORMATION
  Report Type: 
  Country: None (occurrence: None)
  Receive Date: 20111223
  Receipt Date: 20111221
  Transmission Date: 20120403
  Serious: Yes (Death, Other)
  Sender: FDA-Public Use
  Company Number: PHEH2011US012239

PATIENT
  Sex: Male

DRUGS (1)
  1. RECLAST [Suspect]
     Dosage: 5 MG, YEARLY
     Route: 042
     Dates: start: 20100901

REACTIONS (2)
  - DEATH [None]
  - CAROTID ARTERY DISEASE [None]
